FAERS Safety Report 7452387-3 (Version None)
Quarter: 2011Q2

REPORT INFORMATION
  Report Type: 
  Country: None (occurrence: None)
  Receive Date: 20110502
  Receipt Date: 20110422
  Transmission Date: 20111010
  Serious: No
  Sender: FDA-Public Use
  Company Number: US-ROXANE LABORATORIES, INC.-2011-RO-00562RO

PATIENT

DRUGS (1)
  1. ZOLPIDEM [Suspect]

REACTIONS (1)
  - DRUG INEFFECTIVE [None]
